FAERS Safety Report 4265645-0 (Version None)
Quarter: 2004Q1

REPORT INFORMATION
  Report Type: 
  Country: None (occurrence: None)
  Receive Date: 20040107
  Receipt Date: 20031230
  Transmission Date: 20041129
  Serious: Yes (Death, Hospitalization)
  Sender: FDA-Public Use
  Company Number: 200320809US

PATIENT
  Sex: Female
  Weight: 66 kg

DRUGS (10)
  1. TAXOTERE [Suspect]
     Indication: NON-SMALL CELL LUNG CANCER
     Route: 042
     Dates: start: 20030827, end: 20031203
  2. GEMCITABINE [Suspect]
     Indication: NON-SMALL CELL LUNG CANCER
     Route: 042
     Dates: start: 20030827, end: 20031203
  3. SSRI [Concomitant]
     Dates: end: 20031220
  4. FERROUS SULFATE TAB [Concomitant]
     Dates: end: 20031220
  5. NEXIUM [Concomitant]
     Dates: end: 20031220
  6. LOVENOX [Concomitant]
     Dates: end: 20031220
  7. LIPITOR [Concomitant]
     Dates: end: 20031201
  8. NORVASC [Concomitant]
     Dates: end: 20031220
  9. TOPROL-XL [Concomitant]
     Dates: end: 20031220
  10. FOSAMAX [Concomitant]
     Dates: end: 20031220

REACTIONS (3)
  - DYSPNOEA [None]
  - PULMONARY EMBOLISM [None]
  - RESPIRATORY FAILURE [None]
